FAERS Safety Report 13257966 (Version 1)
Quarter: 2017Q1

REPORT INFORMATION
  Report Type: Spontaneous
  Country: US (occurrence: US)
  Receive Date: 20170221
  Receipt Date: 20170221
  Transmission Date: 20170428
  Serious: No
  Sender: FDA-Public Use
  Company Number: US-ELI_LILLY_AND_COMPANY-US201702006552

PATIENT
  Age: 72 Year
  Sex: Female

DRUGS (2)
  1. HUMALOG MIX75/25 [Suspect]
     Active Substance: INSULIN LISPRO
     Dosage: 7 U, EACH EVENING
     Route: 065
     Dates: start: 201606, end: 20160707
  2. HUMALOG MIX75/25 [Suspect]
     Active Substance: INSULIN LISPRO
     Indication: TYPE 1 DIABETES MELLITUS
     Dosage: 5 U, EACH MORNING
     Route: 065
     Dates: start: 201606, end: 20160707

REACTIONS (2)
  - Blood glucose increased [Unknown]
  - Blood glucose decreased [Recovered/Resolved]
